FAERS Safety Report 15328815 (Version 1)
Quarter: 2018Q3

REPORT INFORMATION
  Report Type: Report from Study
  Country: US (occurrence: US)
  Receive Date: 20180829
  Receipt Date: 20180829
  Transmission Date: 20181010
  Serious: Yes (Other)
  Sender: FDA-Public Use
  Company Number: US-BIOGEN-2018BI00622290

PATIENT
  Sex: Female

DRUGS (1)
  1. ZINBRYTA [Suspect]
     Active Substance: DACLIZUMAB
     Indication: MULTIPLE SCLEROSIS
     Route: 058
     Dates: start: 20170817, end: 201801

REACTIONS (21)
  - Amnesia [Unknown]
  - Visual impairment [Unknown]
  - Delusion [Unknown]
  - Disorientation [Unknown]
  - Insomnia [Unknown]
  - Gait inability [Unknown]
  - Balance disorder [Unknown]
  - Autoimmune disorder [Unknown]
  - Pyrexia [Unknown]
  - Muscular weakness [Unknown]
  - Petit mal epilepsy [Unknown]
  - Weight decreased [Unknown]
  - Thinking abnormal [Unknown]
  - Encephalitis [Unknown]
  - Nervous system disorder [Unknown]
  - Mobility decreased [Unknown]
  - Stress [Unknown]
  - Blood pressure abnormal [Unknown]
  - Muscle twitching [Unknown]
  - Muscle spasms [Unknown]
  - Cognitive disorder [Unknown]
